FAERS Safety Report 8102448-0 (Version None)
Quarter: 2012Q1

REPORT INFORMATION
  Report Type: 
  Country: None (occurrence: None)
  Receive Date: 20120126
  Receipt Date: 20120111
  Transmission Date: 20120608
  Serious: Yes (Hospitalization)
  Sender: FDA-Public Use
  Company Number: 2012-018

PATIENT
  Age: 33 Year
  Sex: Female

DRUGS (3)
  1. CLOZAPINE [Suspect]
     Indication: SCHIZOAFFECTIVE DISORDER
     Dosage: 300 MG, QD, ORAL
     Route: 048
  2. QUETIAPINE FUMARATE [Concomitant]
  3. DIVALPROEX SODIUM [Concomitant]

REACTIONS (2)
  - SCHIZOPHRENIA, CATATONIC TYPE [None]
  - NEUTROPENIA [None]
